FAERS Safety Report 4296646-4 (Version None)
Quarter: 2004Q1

REPORT INFORMATION
  Report Type: 
  Country: None (occurrence: None)
  Receive Date: 20040217
  Receipt Date: 20030327
  Transmission Date: 20041129
  Serious: Yes (Hospitalization)
  Sender: FDA-Public Use
  Company Number: IT-ROCHE-335335

PATIENT
  Age: 33 Year
  Sex: Female
  Weight: 45 kg

DRUGS (7)
  1. ENFUVIRTIDE [Suspect]
     Indication: HIV INFECTION
     Route: 058
     Dates: start: 20030129, end: 20030316
  2. ENFUVIRTIDE [Suspect]
     Route: 058
  3. IDV [Concomitant]
     Dates: start: 20030129
  4. DDI [Concomitant]
     Dates: start: 20030129
  5. RTV [Concomitant]
     Dates: start: 20030129
  6. CHEMOTHERAPY [Concomitant]
     Dates: start: 20020404, end: 20030316
  7. VIREAD [Concomitant]
     Dates: start: 20030410

REACTIONS (11)
  - CONFUSIONAL STATE [None]
  - DRUG INEFFECTIVE [None]
  - DRUG INTOLERANCE [None]
  - HEADACHE [None]
  - HEMIPARESIS [None]
  - LOSS OF CONSCIOUSNESS [None]
  - NERVOUS SYSTEM DISORDER [None]
  - NEUROTOXICITY [None]
  - ORAL CANDIDIASIS [None]
  - PAIN [None]
  - TOXOPLASMOSIS [None]
